FAERS Safety Report 12760006 (Version 1)
Quarter: 2016Q3

REPORT INFORMATION
  Report Type: Spontaneous
  Country: US (occurrence: US)
  Receive Date: 20160919
  Receipt Date: 20160919
  Transmission Date: 20161109
  Serious: No
  Sender: FDA-Public Use
  Company Number: US-PFIZER INC-2016431879

PATIENT
  Sex: Male

DRUGS (9)
  1. PROCAINAMIDE [Suspect]
     Active Substance: PROCAINAMIDE HYDROCHLORIDE
     Dosage: UNK
  2. TRIAMTERENE. [Suspect]
     Active Substance: TRIAMTERENE
     Dosage: UNK
  3. ERYTHROMYCIN. [Suspect]
     Active Substance: ERYTHROMYCIN
     Dosage: UNK
  4. DEXBROMPHENIRAMINE MALEATE. [Suspect]
     Active Substance: DEXBROMPHENIRAMINE MALEATE
     Dosage: UNK
  5. ROSUVASTATIN. [Suspect]
     Active Substance: ROSUVASTATIN
     Dosage: UNK
  6. FLECAINIDE [Suspect]
     Active Substance: FLECAINIDE
     Dosage: UNK
  7. TEQUIN [Suspect]
     Active Substance: GATIFLOXACIN
     Dosage: UNK
  8. DILTIAZEM HCL [Suspect]
     Active Substance: DILTIAZEM HYDROCHLORIDE
     Dosage: UNK
  9. PSEUDOEPHEDRINE SULFATE [Suspect]
     Active Substance: PSEUDOEPHEDRINE SULFATE
     Dosage: UNK

REACTIONS (1)
  - Drug hypersensitivity [Unknown]
